FAERS Safety Report 23509536 (Version 2)
Quarter: 2024Q1

REPORT INFORMATION
  Report Type: Report from Study
  Country: US (occurrence: US)
  Receive Date: 20240210
  Receipt Date: 20240222
  Transmission Date: 20240409
  Serious: Yes (Other)
  Sender: FDA-Public Use
  Company Number: US-UCBSA-2023058344

PATIENT
  Age: 69 Year
  Sex: Female

DRUGS (1)
  1. CERTOLIZUMAB PEGOL [Suspect]
     Active Substance: CERTOLIZUMAB PEGOL
     Indication: Psoriatic arthropathy
     Dosage: 400 MILLIGRAM, EV 4 WEEKS
     Route: 058
     Dates: start: 20221201

REACTIONS (9)
  - Hip surgery [Recovered/Resolved]
  - Osteonecrosis [Recovered/Resolved]
  - Osteomyelitis [Recovered/Resolved]
  - Bone operation [Recovered/Resolved]
  - Immunosuppression [Unknown]
  - Injection site pain [Recovered/Resolved]
  - Psoriasis [Recovered/Resolved]
  - Dental cleaning [Unknown]
  - Therapeutic product effect delayed [Unknown]

NARRATIVE: CASE EVENT DATE: 20230101
